FAERS Safety Report 8086897-5 (Version None)
Quarter: 2012Q1

REPORT INFORMATION
  Report Type: 
  Country: None (occurrence: None)
  Receive Date: 20120128
  Receipt Date: 20110518
  Transmission Date: 20120608
  Serious: Yes (Hospitalization)
  Sender: FDA-Public Use
  Company Number: US-ABBOTT-11P-163-0727278-00

PATIENT
  Age: 39 Year
  Sex: Male

DRUGS (2)
  1. HUMIRA [Suspect]
     Dates: start: 20110301
  2. HUMIRA [Suspect]
     Indication: PSORIASIS
     Dates: start: 20060601, end: 20091101

REACTIONS (11)
  - COUGH [None]
  - PYREXIA [None]
  - PAIN [None]
  - LUNG ABSCESS [None]
  - DECREASED APPETITE [None]
  - COLD SWEAT [None]
  - PNEUMONIA [None]
  - GASTROOESOPHAGEAL REFLUX DISEASE [None]
  - LOWER RESPIRATORY TRACT INFECTION [None]
  - WEIGHT DECREASED [None]
  - BLOOD PRESSURE INCREASED [None]
